FAERS Safety Report 7205748-1 (Version None)
Quarter: 2010Q4

REPORT INFORMATION
  Report Type: 
  Country: None (occurrence: None)
  Receive Date: 20101231
  Receipt Date: 20101223
  Transmission Date: 20110411
  Serious: Yes (Disabling)
  Sender: FDA-Public Use
  Company Number: GB-BRISTOL-MYERS SQUIBB COMPANY-15231863

PATIENT
  Age: 45 Year
  Sex: Female

DRUGS (1)
  1. ERBITUX [Suspect]
     Indication: HEAD AND NECK CANCER
     Dosage: 7WEEKLY SHOTS;DISCONTINUED
     Route: 042
     Dates: start: 20070104, end: 20070220

REACTIONS (3)
  - HAIR DISORDER [None]
  - PRURITUS [None]
  - ROSACEA [None]
